FAERS Safety Report 8112669-9 (Version None)
Quarter: 2012Q1

REPORT INFORMATION
  Report Type: 
  Country: None (occurrence: None)
  Receive Date: 20120203
  Receipt Date: 20120120
  Transmission Date: 20120608
  Serious: Yes (Hospitalization)
  Sender: FDA-Public Use
  Company Number: US-ROCHE-1032727

PATIENT
  Sex: Male

DRUGS (3)
  1. PEGASYS [Suspect]
     Indication: HEPATITIS C
  2. RIBAVIRIN [Suspect]
     Indication: HEPATITIS C
  3. INCIVEK [Suspect]
     Indication: HEPATITIS C

REACTIONS (8)
  - BLOOD ELECTROLYTES DECREASED [None]
  - IMMUNODEFICIENCY [None]
  - BLOOD POTASSIUM DECREASED [None]
  - ASPIRATION [None]
  - TRANSFUSION [None]
  - SKIN EXFOLIATION [None]
  - HEPATITIS C RNA INCREASED [None]
  - PNEUMONIA LEGIONELLA [None]
